FAERS Safety Report 17233478 (Version 1)
Quarter: 2020Q1

REPORT INFORMATION
  Report Type: Spontaneous
  Country: DE (occurrence: DE)
  Receive Date: 20200104
  Receipt Date: 20200104
  Transmission Date: 20200409
  Serious: Yes (Hospitalization, Other)
  Sender: FDA-Public Use
  Company Number: DE-ACCORD-168614

PATIENT
  Age: 72 Year
  Sex: Female

DRUGS (2)
  1. RAMIPRIL. [Suspect]
     Active Substance: RAMIPRIL
     Indication: PRODUCT USED FOR UNKNOWN INDICATION
     Dosage: STRENGTH: 2.5 MG
     Route: 048
  2. RESTAXIL MIXTURE [Suspect]
     Active Substance: HERBALS\HOMEOPATHICS
     Indication: NEURALGIA
     Route: 048

REACTIONS (2)
  - Pancreatitis [Recovered/Resolved]
  - Drug-induced liver injury [Recovered/Resolved]
